FAERS Safety Report 16095691 (Version 2)
Quarter: 2019Q2

REPORT INFORMATION
  Report Type: Spontaneous
  Country: IT (occurrence: IT)
  Receive Date: 20190320
  Receipt Date: 20190405
  Transmission Date: 20190711
  Serious: Yes (Death, Hospitalization, Other)
  Sender: FDA-Public Use
  Company Number: IT-SA-2019SA074367

PATIENT
  Age: 48 Year
  Sex: Female

DRUGS (3)
  1. AUBAGIO [Suspect]
     Active Substance: TERIFLUNOMIDE
     Indication: MULTIPLE SCLEROSIS
     Dosage: 14 MG, QD
     Route: 048
     Dates: start: 20180131, end: 20180404
  2. DEURSIL [Concomitant]
     Active Substance: URSODIOL
  3. AUBAGIO [Suspect]
     Active Substance: TERIFLUNOMIDE
     Dosage: 14 MG, QD
     Route: 048
     Dates: start: 201807, end: 20190220

REACTIONS (21)
  - Methaemoglobinaemia [Fatal]
  - Syncope [Unknown]
  - Pneumococcal infection [Fatal]
  - Hypotension [Unknown]
  - Dyspnoea [Unknown]
  - Dehydration [Unknown]
  - Hypoxia [Unknown]
  - Thrombocytopenia [Unknown]
  - Malaise [Unknown]
  - Chest pain [Unknown]
  - Neutropenia [Unknown]
  - Atrial fibrillation [Unknown]
  - Eating disorder [Unknown]
  - Sepsis [Fatal]
  - Panic attack [Unknown]
  - Liver disorder [Unknown]
  - Acute respiratory failure [Fatal]
  - H1N1 influenza [Fatal]
  - Multiple organ dysfunction syndrome [Fatal]
  - Liver function test abnormal [Unknown]
  - Hyperpyrexia [Unknown]

NARRATIVE: CASE EVENT DATE: 2018
